FAERS Safety Report 15849684 (Version 1)
Quarter: 2019Q1

REPORT INFORMATION
  Report Type: Spontaneous
  Country: SK (occurrence: SK)
  Receive Date: 20190121
  Receipt Date: 20190121
  Transmission Date: 20190417
  Serious: Yes (Other)
  Sender: FDA-Public Use
  Company Number: SK-MYLANLABS-2018M1079818

PATIENT
  Age: 70 Year
  Sex: Female

DRUGS (5)
  1. PACLITAXEL. [Suspect]
     Active Substance: PACLITAXEL
     Dosage: 125 MILLIGRAM/SQ. METER, UNK
     Route: 041
     Dates: start: 20160905
  2. GEMCITABINE [Suspect]
     Active Substance: GEMCITABINE\GEMCITABINE HYDROCHLORIDE
     Dosage: 1000 MG/M2, UNK (2 WEEKS OF THERAPY, ONE WEEK PAUSE AND SUBSEQUENTLY 2 WEEKS OF THERAPY)
     Route: 065
     Dates: start: 20160905
  3. PACLITAXEL. [Suspect]
     Active Substance: PACLITAXEL
     Dosage: 125 MG/M2, UNK(2 WEEKS OF THERAPY, ONE WEEK PAUSE AND SUBSEQUENTLY 2 WEEKS OF THERAPY)
     Route: 065
  4. GEMCITABINE [Suspect]
     Active Substance: GEMCITABINE\GEMCITABINE HYDROCHLORIDE
     Indication: PANCREATIC CARCINOMA
     Dosage: UNK
     Route: 065
  5. PACLITAXEL. [Suspect]
     Active Substance: PACLITAXEL
     Indication: PANCREATIC CARCINOMA
     Dosage: UNK
     Route: 065

REACTIONS (3)
  - Thrombocytopenia [Recovering/Resolving]
  - Pancytopenia [Not Recovered/Not Resolved]
  - Leukopenia [Recovering/Resolving]

NARRATIVE: CASE EVENT DATE: 2016
